FAERS Safety Report 8596038-3 (Version None)
Quarter: 2012Q3

REPORT INFORMATION
  Report Type: 
  Country: None (occurrence: None)
  Receive Date: 20120815
  Receipt Date: 20120813
  Transmission Date: 20120928
  Serious: Yes (Other)
  Sender: FDA-Public Use
  Company Number: CH-ROCHE-1101426

PATIENT
  Sex: Female

DRUGS (3)
  1. OMEPRAZOLE [Concomitant]
     Dates: start: 20050101
  2. ACETAMINOPHEN [Concomitant]
     Dates: start: 20050101
  3. BONIVA [Suspect]
     Indication: OSTEOPOROSIS
     Route: 042
     Dates: start: 20100423

REACTIONS (1)
  - ESSENTIAL THROMBOCYTHAEMIA [None]
